FAERS Safety Report 4528342-X (Version None)
Quarter: 2004Q4

REPORT INFORMATION
  Report Type: 
  Country: None (occurrence: None)
  Receive Date: 20041130
  Receipt Date: 20040511
  Transmission Date: 20050328
  Serious: Yes (Disabling)
  Sender: FDA-Public Use
  Company Number: WAES 0405USA00756

PATIENT
  Age: 75 Year
  Sex: Female

DRUGS (4)
  1. FOSAMAX [Suspect]
     Indication: BONE DISORDER
     Dosage: 70 MG/WKY/PO; 35 MG/WKY/PO
     Route: 048
     Dates: start: 20031101, end: 20040101
  2. FOSAMAX [Suspect]
     Indication: BONE DISORDER
     Dosage: 70 MG/WKY/PO; 35 MG/WKY/PO
     Route: 048
     Dates: start: 20040101, end: 20040101
  3. LIPITOR [Concomitant]
  4. NORVASC [Concomitant]

REACTIONS (1)
  - MYALGIA [None]
